FAERS Safety Report 4639694-4 (Version None)
Quarter: 2005Q2

REPORT INFORMATION
  Report Type: 
  Country: None (occurrence: None)
  Receive Date: 20050415
  Receipt Date: 20050331
  Transmission Date: 20051028
  Serious: No
  Sender: FDA-Public Use
  Company Number: 10797

PATIENT
  Age: 7 Year
  Sex: Female

DRUGS (6)
  1. METHOTREXATE [Suspect]
     Dosage: 17.5 MG WEEKLY SC
     Route: 058
     Dates: start: 19930101
  2. ETANERCEPT [Suspect]
     Indication: RHEUMATOID ARTHRITIS
     Dosage: 12.5 MG 2/WK SC
     Route: 058
     Dates: start: 20010420
  3. IBUPROFEN [Concomitant]
  4. CALCIUM CARBONATE [Concomitant]
  5. OMEPRAZOLE [Concomitant]
  6. PREDNISOLONE [Concomitant]

REACTIONS (2)
  - INJECTION SITE PRURITUS [None]
  - INJECTION SITE RASH [None]
